FAERS Safety Report 19652357 (Version 2)
Quarter: 2021Q3

REPORT INFORMATION
  Report Type: Spontaneous
  Country: US (occurrence: US)
  Receive Date: 20210803
  Receipt Date: 20210830
  Transmission Date: 20211014
  Serious: No
  Sender: FDA-Public Use
  Company Number: US-ASTRAZENECA-2021A609238

PATIENT
  Age: 22777 Day
  Sex: Male
  Weight: 112 kg

DRUGS (2)
  1. BYDUREON [Suspect]
     Active Substance: EXENATIDE
     Route: 065
  2. BYDUREON BCISE [Suspect]
     Active Substance: EXENATIDE
     Indication: DIABETES MELLITUS
     Route: 058

REACTIONS (8)
  - Device leakage [Unknown]
  - Device defective [Unknown]
  - Injection site haemorrhage [Unknown]
  - Injection site pain [Unknown]
  - Device use issue [Unknown]
  - Weight decreased [Unknown]
  - Decreased appetite [Unknown]
  - Needle issue [Unknown]

NARRATIVE: CASE EVENT DATE: 20210707
